FAERS Safety Report 26062392 (Version 1)
Quarter: 2025Q4

REPORT INFORMATION
  Report Type: Spontaneous
  Country: US (occurrence: US)
  Receive Date: 20251119
  Receipt Date: 20251119
  Transmission Date: 20260118
  Serious: Yes (Hospitalization)
  Sender: Onesource Specialty Pharma
  Company Number: US-STRIDES ARCOLAB LIMITED-2025OS001166

PATIENT
  Age: 73 Year
  Sex: Male

DRUGS (1)
  1. AMANTADINE [Suspect]
     Active Substance: AMANTADINE
     Indication: Depressed level of consciousness
     Dosage: 100 MILLIGRAM, BID
     Route: 065

REACTIONS (6)
  - Mental status changes [None]
  - Myoclonus [None]
  - Tremor [None]
  - Agitation [None]
  - Toxicity to various agents [None]
  - Off label use [Unknown]
